FAERS Safety Report 21001871 (Version 2)
Quarter: 2022Q3

REPORT INFORMATION
  Report Type: Spontaneous
  Country: US (occurrence: US)
  Receive Date: 20220624
  Receipt Date: 20220811
  Transmission Date: 20221026
  Serious: No
  Sender: FDA-Public Use
  Company Number: US-ALIMERA SCIENCES LIMITED-US-A16013-22-000152

PATIENT
  Sex: Female

DRUGS (1)
  1. ILUVIEN [Suspect]
     Active Substance: FLUOCINOLONE ACETONIDE
     Indication: Macular oedema
     Dosage: 0.25 MICROGRAM, QD -UNKNOWN EYE
     Route: 031

REACTIONS (2)
  - Therapeutic response shortened [Unknown]
  - Photocoagulation [Recovered/Resolved]
